FAERS Safety Report 10174219 (Version 1)
Quarter: 2014Q2

REPORT INFORMATION
  Report Type: Spontaneous
  Country: US (occurrence: US)
  Receive Date: 20140515
  Receipt Date: 20140515
  Transmission Date: 20141212
  Serious: Yes (Other)
  Sender: FDA-Public Use
  Company Number: US-ACTAVIS-2014-09732

PATIENT
  Age: 77 Year
  Sex: Male

DRUGS (2)
  1. CLARITHROMYCIN (UNKNOWN) [Suspect]
     Indication: CELLULITIS
     Dosage: 500 MG, BID
     Route: 048
     Dates: start: 19950713, end: 19950718
  2. CEFTAZIDIME [Concomitant]
     Indication: CELLULITIS
     Dosage: 3 G, DAILY
     Route: 042
     Dates: start: 19950713, end: 19950716

REACTIONS (2)
  - Mania [Recovered/Resolved]
  - Hallucination [Recovered/Resolved]
